FAERS Safety Report 5283526-0 (Version None)
Quarter: 2007Q1

REPORT INFORMATION
  Report Type: 
  Country: None (occurrence: None)
  Receive Date: 20061226
  Receipt Date: 20060929
  Transmission Date: 20070707
  Serious: No
  Sender: FDA-Public Use
  Company Number: 2006PV022292

PATIENT
  Age: 62 Year
  Sex: Male
  Weight: 129.2752 kg

DRUGS (6)
  1. SYMLIN [Suspect]
     Indication: DIABETES MELLITUS NON-INSULIN-DEPENDENT
     Dosage: SEE IMAGE
     Route: 058
  2. SYMLIN [Suspect]
     Indication: DIABETES MELLITUS NON-INSULIN-DEPENDENT
     Dosage: SEE IMAGE
     Route: 058
  3. SYMLIN [Suspect]
     Indication: DIABETES MELLITUS NON-INSULIN-DEPENDENT
     Dosage: SEE IMAGE
     Route: 058
  4. SYMLIN [Suspect]
     Indication: DIABETES MELLITUS NON-INSULIN-DEPENDENT
     Dosage: SEE IMAGE
     Route: 058
     Dates: start: 20060822
  5. HUMULIN 70/30 [Concomitant]
  6. ACTOS [Concomitant]

REACTIONS (7)
  - ABDOMINAL PAIN UPPER [None]
  - BLOOD GLUCOSE DECREASED [None]
  - BLOOD GLUCOSE INCREASED [None]
  - DECREASED APPETITE [None]
  - NAUSEA [None]
  - SOMNOLENCE [None]
  - WEIGHT DECREASED [None]
